FAERS Safety Report 11583225 (Version 1)
Quarter: 2015Q4

REPORT INFORMATION
  Report Type: Spontaneous
  Country: US (occurrence: US)
  Receive Date: 20151001
  Receipt Date: 20151001
  Transmission Date: 20160304
  Serious: No
  Sender: FDA-Public Use
  Company Number: US-ROCHE-693646

PATIENT
  Age: 59 Year
  Sex: Female

DRUGS (2)
  1. RIBAVIRIN. [Suspect]
     Active Substance: RIBAVIRIN
     Indication: HEPATITIS C
     Dosage: DAILY IN DIVIDED DOSES
     Route: 065
  2. PEGASYS [Suspect]
     Active Substance: PEGINTERFERON ALFA-2A
     Indication: HEPATITIS C
     Dosage: FORM: PRE-FILLED SYRINGE
     Route: 065

REACTIONS (6)
  - Nausea [Unknown]
  - Pain in extremity [Unknown]
  - Vomiting [Unknown]
  - Diarrhoea [Unknown]
  - Musculoskeletal chest pain [Unknown]
  - Breast pain [Unknown]

NARRATIVE: CASE EVENT DATE: 20100312
